FAERS Safety Report 4357500-2 (Version None)
Quarter: 2004Q2

REPORT INFORMATION
  Report Type: 
  Country: None (occurrence: None)
  Receive Date: 20040510
  Receipt Date: 20040426
  Transmission Date: 20050107
  Serious: Yes (Death)
  Sender: FDA-Public Use
  Company Number: 2003AP04454

PATIENT
  Age: 69 Year
  Sex: Male

DRUGS (13)
  1. IRESSA [Suspect]
     Indication: LUNG SQUAMOUS CELL CARCINOMA STAGE UNSPECIFIED
     Dosage: 250 MG DAILY PO
     Route: 048
     Dates: start: 20031121, end: 20031211
  2. IRESSA [Suspect]
     Indication: NON-SMALL CELL LUNG CANCER
     Dosage: 250 MG DAILY PO
     Route: 048
     Dates: start: 20031121, end: 20031211
  3. CEROCRAL [Concomitant]
  4. LENDORM [Concomitant]
  5. PAXIL [Concomitant]
  6. EPADEL [Concomitant]
  7. CLEANAL [Concomitant]
  8. BISOLVON [Concomitant]
  9. RESPLEN [Concomitant]
  10. NOVAMIN [Concomitant]
  11. CARBOPLATIN [Concomitant]
  12. TAXOL [Concomitant]
  13. RADIOTHERAPY [Concomitant]

REACTIONS (7)
  - ACUTE RESPIRATORY FAILURE [None]
  - LIVER DISORDER [None]
  - LUNG DISORDER [None]
  - MULTI-ORGAN FAILURE [None]
  - PNEUMONIA [None]
  - PYREXIA [None]
  - RENAL DISORDER [None]
